FAERS Safety Report 12916076 (Version 2)
Quarter: 2016Q4

REPORT INFORMATION
  Report Type: Spontaneous
  Country: GB (occurrence: GB)
  Receive Date: 20161104
  Receipt Date: 20161107
  Transmission Date: 20170207
  Serious: Yes (Other)
  Sender: FDA-Public Use
  Company Number: US-AIRGAS USA-1059250

PATIENT
  Age: 80 Year
  Sex: Male

DRUGS (5)
  1. FENTANYL. [Concomitant]
     Active Substance: FENTANYL
  2. DEXAMETHASONE. [Concomitant]
     Active Substance: DEXAMETHASONE
  3. PROPOFOL. [Concomitant]
     Active Substance: PROPOFOL
  4. CARBON DIOXIDE. [Suspect]
     Active Substance: CARBON DIOXIDE
     Indication: ANAL LESION EXCISION
     Route: 054
  5. SEVOFLURANE. [Concomitant]
     Active Substance: SEVOFLURANE

REACTIONS (2)
  - Subcutaneous emphysema [Recovered/Resolved]
  - Hypercapnia [Unknown]
